FAERS Safety Report 11973165 (Version 7)
Quarter: 2021Q2

REPORT INFORMATION
  Report Type: Spontaneous
  Country: JP (occurrence: JP)
  Receive Date: 20160128
  Receipt Date: 20210414
  Transmission Date: 20210716
  Serious: Yes (Death, Other)
  Sender: FDA-Public Use
  Company Number: JP-BRISTOL-MYERS SQUIBB COMPANY-BMS-2016-003182

PATIENT
  Age: 58 Year
  Sex: Female

DRUGS (8)
  1. ASUNAPREVIR [Suspect]
     Active Substance: ASUNAPREVIR
     Indication: CHRONIC HEPATITIS C
     Dosage: 100 MG, BID
     Route: 048
     Dates: start: 20151006, end: 20151210
  2. ASUNAPREVIR [Suspect]
     Active Substance: ASUNAPREVIR
     Indication: CHRONIC HEPATITIS B
  3. DAKLINZA [Suspect]
     Active Substance: DACLATASVIR
     Indication: CHRONIC HEPATITIS C
     Dosage: 60 MG, QD
     Route: 048
     Dates: start: 20151006, end: 20151210
  4. PREDONINE [Suspect]
     Active Substance: PREDNISOLONE
     Indication: PRODUCT USED FOR UNKNOWN INDICATION
     Route: 065
  5. REZALTAS [Suspect]
     Active Substance: AZELNIDIPINE\OLMESARTAN MEDOXOMIL
     Indication: PRODUCT USED FOR UNKNOWN INDICATION
     Dosage: UNK, QD AT MORNING
     Route: 065
  6. DAKLINZA [Suspect]
     Active Substance: DACLATASVIR
     Indication: CHRONIC HEPATITIS B
  7. OSPAIN [Concomitant]
     Active Substance: ETODOLAC
     Indication: PRODUCT USED FOR UNKNOWN INDICATION
     Dosage: 200 MG, QD
     Route: 065
  8. BRONUCK [Concomitant]
     Active Substance: BROMFENAC SODIUM
     Indication: PRODUCT USED FOR UNKNOWN INDICATION
     Dosage: UNK, BID
     Route: 065

REACTIONS (5)
  - Hepatic failure [Fatal]
  - Hepatitis B reactivation [Fatal]
  - Sepsis [Fatal]
  - Multiple organ dysfunction syndrome [Fatal]
  - Off label use [Unknown]

NARRATIVE: CASE EVENT DATE: 20151211
